FAERS Safety Report 4621342-0 (Version None)
Quarter: 2005Q1

REPORT INFORMATION
  Report Type: 
  Country: None (occurrence: None)
  Receive Date: 20050324
  Receipt Date: 20050324
  Transmission Date: 20050727
  Serious: Yes (Other)
  Sender: FDA-Public Use
  Company Number: None

PATIENT
  Age: 78 Year
  Sex: Male
  Weight: 109 kg

DRUGS (7)
  1. TEQUIN [Suspect]
     Indication: URINARY TRACT INFECTION
     Dosage: 400MG DAILY ORAL
     Route: 048
     Dates: start: 20050301, end: 20050302
  2. LOPERAMIDE HCL [Concomitant]
  3. LASIX [Concomitant]
  4. HYDROCHLOROTHIAZIDE [Concomitant]
  5. INSULIN [Concomitant]
  6. TYLENOL (CAPLET) [Concomitant]
  7. POTASSIUM CHLORIDE [Concomitant]

REACTIONS (1)
  - BLOOD GLUCOSE FLUCTUATION [None]
